FAERS Safety Report 4325042-6 (Version None)
Quarter: 2004Q1

REPORT INFORMATION
  Report Type: 
  Country: None (occurrence: None)
  Receive Date: 20040326
  Receipt Date: 20040326
  Transmission Date: 20041129
  Serious: Yes (Hospitalization)
  Sender: FDA-Public Use
  Company Number: None

PATIENT
  Age: 58 Year
  Sex: Male
  Weight: 80.2867 kg

DRUGS (1)
  1. CELEBREX [Suspect]
     Indication: ROTATOR CUFF SYNDROME
     Dosage: 1 A DAY
     Dates: start: 20040305, end: 20040314

REACTIONS (6)
  - DERMATITIS EXFOLIATIVE [None]
  - ERYTHEMA [None]
  - ORAL PAIN [None]
  - PYREXIA [None]
  - URTICARIA [None]
  - WEIGHT DECREASED [None]
